FAERS Safety Report 16986347 (Version 1)
Quarter: 2019Q4

REPORT INFORMATION
  Report Type: Report from Study
  Country: GB (occurrence: GB)
  Receive Date: 20191101
  Receipt Date: 20191101
  Transmission Date: 20200122
  Serious: Yes (Hospitalization)
  Sender: FDA-Public Use
  Company Number: GB-INCYTE CORPORATION-2019IN010881

PATIENT

DRUGS (13)
  1. JAKAVI [Suspect]
     Active Substance: RUXOLITINIB
     Indication: MYELOFIBROSIS
     Dosage: UNK
     Route: 065
     Dates: start: 20130715, end: 20170816
  2. NAVITOCLAX [Suspect]
     Active Substance: NAVITOCLAX
     Dosage: 200 MG (1 IN 1D)
     Route: 048
     Dates: start: 20190130, end: 20190226
  3. JAKAVI [Suspect]
     Active Substance: RUXOLITINIB
     Dosage: UNK
     Route: 065
     Dates: start: 20180328
  4. NAVITOCLAX [Suspect]
     Active Substance: NAVITOCLAX
     Dosage: 100 MG (1 IN 1D)
     Route: 048
     Dates: start: 20190123, end: 20190129
  5. AMLODIPINE [Concomitant]
     Active Substance: AMLODIPINE BESYLATE
     Indication: HYPERTENSION
     Dosage: 10 MG, 1 IN 1D
     Route: 048
     Dates: start: 20110919
  6. JAKAVI [Suspect]
     Active Substance: RUXOLITINIB
     Dosage: 20 MG (10 MG, 2 IN 1 D)
     Route: 048
     Dates: start: 20190109
  7. COCODAMOL [Concomitant]
     Active Substance: ACETAMINOPHEN\CODEINE PHOSPHATE
     Indication: BACK PAIN
     Dosage: 30/500 MG, PRN
     Route: 048
     Dates: start: 20150312
  8. NAVITOCLAX [Suspect]
     Active Substance: NAVITOCLAX
     Indication: MYELOFIBROSIS
     Dosage: 50 MG (1 IN 1D)
     Route: 048
     Dates: start: 20190109, end: 20190122
  9. NAVITOCLAX [Suspect]
     Active Substance: NAVITOCLAX
     Dosage: 300 MG (1 IN 1D)
     Route: 048
     Dates: start: 20190227, end: 20190829
  10. NAVITOCLAX [Suspect]
     Active Substance: NAVITOCLAX
     Dosage: 200 MG (1 IN 1D)
     Route: 048
     Dates: start: 20190831
  11. CARBAMAZEPINE. [Concomitant]
     Active Substance: CARBAMAZEPINE
     Indication: FACIAL PAIN
     Dosage: 2 DF 400 MG (200 MG, 2 IN 1 D)
     Route: 048
     Dates: start: 20190424, end: 20190803
  12. ACICLOVIR [Concomitant]
     Active Substance: ACYCLOVIR
     Indication: PROPHYLAXIS
     Dosage: 2 DF (800 MG (400 MG, 2 IN 1 D)
     Route: 048
     Dates: start: 20190703
  13. ASPIRINE [Concomitant]
     Active Substance: ASPIRIN
     Indication: PROPHYLAXIS
     Dosage: 75 MG, 1 IN 1 D
     Route: 048
     Dates: start: 20070501

REACTIONS (4)
  - Tachycardia [Unknown]
  - Diarrhoea [Unknown]
  - Pyrexia [Recovered/Resolved]
  - Gout [Recovered/Resolved]

NARRATIVE: CASE EVENT DATE: 20190804
